FAERS Safety Report 7783802-3 (Version None)
Quarter: 2011Q3

REPORT INFORMATION
  Report Type: 
  Country: None (occurrence: None)
  Receive Date: 20110928
  Receipt Date: 20110531
  Transmission Date: 20111222
  Serious: No
  Sender: FDA-Public Use
  Company Number: US-BAYER-2011-047621

PATIENT
  Age: 2 Year
  Sex: Male

DRUGS (1)
  1. ALEVE (CAPLET) [Suspect]
     Indication: MEDICATION ERROR
     Dosage: UNK
     Dates: start: 20110531

REACTIONS (1)
  - NO ADVERSE EVENT [None]
